FAERS Safety Report 4316955-X (Version None)
Quarter: 2004Q1

REPORT INFORMATION
  Report Type: 
  Country: None (occurrence: None)
  Receive Date: 20040312
  Receipt Date: 20040302
  Transmission Date: 20041129
  Serious: Yes (Other)
  Sender: FDA-Public Use
  Company Number: USA-2002-009654

PATIENT
  Age: 79 Year
  Sex: Male

DRUGS (4)
  1. FLUDARA [Suspect]
     Indication: NON-HODGKIN'S LYMPHOMA
     Dosage: 25 MG/M2, CYCLE X5D X4 CYCLES, UNK
     Dates: start: 20020401, end: 20020801
  2. TENORMIN [Concomitant]
  3. PROCRIT (ERYTHROPOIETIN) [Concomitant]
  4. NEUPOGEN [Concomitant]

REACTIONS (2)
  - HAEMOGLOBIN DECREASED [None]
  - IDIOPATHIC THROMBOCYTOPENIC PURPURA [None]
